FAERS Safety Report 10729101 (Version 1)
Quarter: 2015Q1

REPORT INFORMATION
  Report Type: Spontaneous
  Country: FR (occurrence: FR)
  Receive Date: 20150122
  Receipt Date: 20150122
  Transmission Date: 20150721
  Serious: Yes (Hospitalization)
  Sender: FDA-Public Use
  Company Number: FR-GLAXOSMITHKLINE-FR2015GSK005231

PATIENT
  Age: 81 Year
  Sex: Female

DRUGS (3)
  1. GEMZAR [Suspect]
     Active Substance: GEMCITABINE HYDROCHLORIDE
     Dosage: 1960 MG, CYC
     Route: 042
     Dates: start: 20141211, end: 20141211
  2. METHYLPREDNISOLONE. [Suspect]
     Active Substance: METHYLPREDNISOLONE
     Dosage: 40 MG, CYC
     Route: 042
     Dates: start: 20141211, end: 20141211
  3. ZOPHREN [Suspect]
     Active Substance: ONDANSETRON
     Dosage: 8 MG, CYC
     Route: 042
     Dates: start: 20141211, end: 20141211

REACTIONS (2)
  - Rash [Recovered/Resolved]
  - Rash maculo-papular [Recovered/Resolved]

NARRATIVE: CASE EVENT DATE: 20141211
